FAERS Safety Report 19707151 (Version 2)
Quarter: 2021Q4

REPORT INFORMATION
  Report Type: Other
  Country: CA (occurrence: CA)
  Receive Date: 20210817
  Receipt Date: 20211216
  Transmission Date: 20220304
  Serious: Yes (Other)
  Sender: FDA-Public Use
  Company Number: CA-GLENMARK PHARMACEUTICALS-2021GMK067228

PATIENT

DRUGS (46)
  1. GABAPENTIN [Suspect]
     Active Substance: GABAPENTIN
     Indication: Product used for unknown indication
     Dosage: UNK
     Route: 065
  2. ACETAMINOPHEN [Suspect]
     Active Substance: ACETAMINOPHEN
     Indication: Pruritus
     Dosage: UNK
     Route: 065
  3. ALENDRONATE SODIUM [Suspect]
     Active Substance: ALENDRONATE SODIUM
     Indication: Osteoporosis postmenopausal
     Dosage: 1 DOSAGE FORM, OD
     Route: 065
  4. AMITRIPTYLINE [Suspect]
     Active Substance: AMITRIPTYLINE
     Indication: Depression
     Dosage: UNK
     Route: 065
  5. FUROSEMIDE [Suspect]
     Active Substance: FUROSEMIDE
     Indication: Fluid retention
     Dosage: UNK
     Route: 065
  6. SULFAMETHOXAZOLE\TRIMETHOPRIM [Suspect]
     Active Substance: SULFAMETHOXAZOLE\TRIMETHOPRIM
     Indication: Stomatitis
     Dosage: UNK
     Route: 065
  7. ATROVENT HFA [Suspect]
     Active Substance: IPRATROPIUM BROMIDE
     Indication: Product used for unknown indication
     Dosage: UNK
     Route: 065
  8. BREO ELLIPTA [Suspect]
     Active Substance: FLUTICASONE FUROATE\VILANTEROL TRIFENATATE
     Indication: Product used for unknown indication
     Dosage: 1 DOSAGE FORM, OD (FORMULATION: INHALATION)
     Route: 065
  9. BUPROPION [Suspect]
     Active Substance: BUPROPION
     Indication: Urticaria
     Dosage: UNK
     Route: 065
  10. CAFFEINE [Suspect]
     Active Substance: CAFFEINE
     Indication: Pruritus
     Dosage: UNK
     Route: 065
  11. CEFUROXIME AXETIL [Suspect]
     Active Substance: CEFUROXIME AXETIL
     Indication: Malaise
     Dosage: UNK
     Route: 065
  12. CEFUROXIME AXETIL [Suspect]
     Active Substance: CEFUROXIME AXETIL
     Indication: Fatigue
     Dosage: UNK
     Route: 065
  13. CEFUROXIME AXETIL [Suspect]
     Active Substance: CEFUROXIME AXETIL
     Indication: Diarrhoea
  14. CEFUROXIME AXETIL [Suspect]
     Active Substance: CEFUROXIME AXETIL
     Indication: Malaise
     Dosage: UNK
     Route: 065
  15. CEFUROXIME AXETIL [Suspect]
     Active Substance: CEFUROXIME AXETIL
     Indication: Fatigue
  16. CEFUROXIME AXETIL [Suspect]
     Active Substance: CEFUROXIME AXETIL
     Indication: Diarrhoea
  17. CELEBREX [Suspect]
     Active Substance: CELECOXIB
     Indication: Oesophageal pain
     Dosage: UNK
     Route: 065
  18. CELEBREX [Suspect]
     Active Substance: CELECOXIB
     Indication: Abdominal pain upper
     Dosage: UNK
     Route: 065
  19. CIPROFLOXACIN [Suspect]
     Active Substance: CIPROFLOXACIN
     Indication: Urticaria
     Dosage: UNK
     Route: 065
  20. CIPROFLOXACIN HYDROCHLORIDE [Suspect]
     Active Substance: CIPROFLOXACIN HYDROCHLORIDE
     Indication: Urticaria
     Dosage: UNK
     Route: 065
  21. CLOPIDOGREL [Suspect]
     Active Substance: CLOPIDOGREL BISULFATE
     Indication: Anticoagulant therapy
     Dosage: 1 DOSAGE FORM, OD
     Route: 065
  22. CLOPIDOGREL [Suspect]
     Active Substance: CLOPIDOGREL BISULFATE
     Dosage: UNK
     Route: 065
  23. CODEINE [Suspect]
     Active Substance: CODEINE
     Indication: Pruritus
     Dosage: UNK
     Route: 065
  24. CYMBALTA [Suspect]
     Active Substance: DULOXETINE HYDROCHLORIDE
     Indication: Depression
     Dosage: 1 DOSAGE FORM, OD
     Route: 065
  25. CYMBALTA [Suspect]
     Active Substance: DULOXETINE HYDROCHLORIDE
     Indication: Anxiety
     Dosage: UNK
     Route: 065
  26. FERROUS GLUCONATE [Suspect]
     Active Substance: FERROUS GLUCONATE
     Indication: Iron deficiency
     Dosage: UNK
     Route: 065
  27. NITROGLYCERIN [Suspect]
     Active Substance: NITROGLYCERIN
     Indication: Oesophageal spasm
     Dosage: UNK
     Route: 065
  28. GRAVOL [Suspect]
     Active Substance: DIMENHYDRINATE
     Indication: Anxiety
     Dosage: UNK
     Route: 065
  29. INDOMETHACIN [Suspect]
     Active Substance: INDOMETHACIN
     Indication: Vomiting
     Dosage: UNK
     Route: 065
  30. INDOMETHACIN [Suspect]
     Active Substance: INDOMETHACIN
     Indication: Vision blurred
     Dosage: UNK
     Route: 065
  31. INDOMETHACIN [Suspect]
     Active Substance: INDOMETHACIN
     Indication: Abdominal pain upper
     Dosage: UNK
     Route: 065
  32. INSULIN ASPART [Suspect]
     Active Substance: INSULIN ASPART
     Indication: Type 2 diabetes mellitus
     Dosage: UNK
     Route: 065
  33. KETAMINE [Suspect]
     Active Substance: KETAMINE
     Indication: Hallucination
     Dosage: UNK
     Route: 065
  34. MOXIFLOXACIN [Suspect]
     Active Substance: MOXIFLOXACIN
     Indication: Rash
     Dosage: UNK
     Route: 065
  35. MOXIFLOXACIN HYDROCHLORIDE [Suspect]
     Active Substance: MOXIFLOXACIN HYDROCHLORIDE
     Indication: Rash
     Dosage: UNK
     Route: 065
  36. NAPROXEN SODIUM [Suspect]
     Active Substance: NAPROXEN SODIUM
     Indication: Pruritus
     Dosage: UNK
     Route: 065
  37. NITROFURANTOIN [Suspect]
     Active Substance: NITROFURANTOIN
     Indication: Cystitis
     Dosage: UNK
     Route: 065
  38. PENICILLIN G SODIUM [Suspect]
     Active Substance: PENICILLIN G SODIUM
     Indication: Product used for unknown indication
     Dosage: UNK
     Route: 065
  39. PERINDOPRIL [Suspect]
     Active Substance: PERINDOPRIL
     Indication: Blood pressure abnormal
     Dosage: 1 DOSAGE FORM, OD
     Route: 065
  40. POTASSIUM CHLORIDE [Suspect]
     Active Substance: POTASSIUM CHLORIDE
     Indication: Product used for unknown indication
     Dosage: 3 DOSAGE FORM, OD
     Route: 065
  41. PREDNISONE [Suspect]
     Active Substance: PREDNISONE
     Indication: Product used for unknown indication
     Dosage: UNK
     Route: 065
  42. ALBUTEROL [Suspect]
     Active Substance: ALBUTEROL
     Indication: Product used for unknown indication
     Dosage: UNK
     Route: 065
  43. SENOKOT [Suspect]
     Active Substance: SENNOSIDES
     Indication: Abdominal pain
     Dosage: UNK
     Route: 065
  44. TIOTROPIUM BROMIDE [Suspect]
     Active Substance: TIOTROPIUM BROMIDE
     Indication: Product used for unknown indication
     Dosage: UNK
     Route: 065
  45. VIOXX [Suspect]
     Active Substance: ROFECOXIB
     Indication: Urticaria
     Dosage: UNK
     Route: 065
  46. VITAMIN D3 [Suspect]
     Active Substance: CHOLECALCIFEROL
     Indication: Osteoporosis postmenopausal
     Dosage: UNK
     Route: 065

REACTIONS (30)
  - Fibromyalgia [Unknown]
  - Lymphoedema [Unknown]
  - Fluid retention [Unknown]
  - Oesophageal pain [Unknown]
  - Sleep apnoea syndrome [Unknown]
  - Vision blurred [Unknown]
  - Cystitis [Unknown]
  - Hyperhidrosis [Unknown]
  - Feeling abnormal [Unknown]
  - Myocardial infarction [Unknown]
  - Stomatitis [Unknown]
  - Oesophageal spasm [Unknown]
  - Migraine [Unknown]
  - Abdominal pain [Unknown]
  - Bronchitis [Unknown]
  - Abdominal pain upper [Unknown]
  - Diarrhoea [Unknown]
  - Hallucination [Unknown]
  - Malaise [Unknown]
  - Pruritus [Unknown]
  - Pneumonia [Unknown]
  - Tinnitus [Unknown]
  - Rash [Unknown]
  - Urticaria [Unknown]
  - Depression [Unknown]
  - Fatigue [Unknown]
  - Dizziness [Unknown]
  - Vomiting [Unknown]
  - Agitation [Unknown]
  - Anxiety [Unknown]
